FAERS Safety Report 4593417-6 (Version None)
Quarter: 2005Q1

REPORT INFORMATION
  Report Type: 
  Country: None (occurrence: None)
  Receive Date: 20050224
  Receipt Date: 20040611
  Transmission Date: 20050727
  Serious: No
  Sender: FDA-Public Use
  Company Number: US-BRISTOL-MYERS SQUIBB COMPANY-12620746

PATIENT
  Sex: Female

DRUGS (1)
  1. EXCEDRIN (MIGRAINE) [Suspect]
     Indication: HEADACHE
     Dosage: NUMBER OF DOSAGES: 1/3 CAPSULE 2-3 PER 1 DAY
     Route: 048

REACTIONS (2)
  - HEADACHE [None]
  - PURPURA [None]
